FAERS Safety Report 7962222-2 (Version None)
Quarter: 2011Q4

REPORT INFORMATION
  Report Type: 
  Country: None (occurrence: None)
  Receive Date: 20111207
  Receipt Date: 20111201
  Transmission Date: 20120403
  Serious: Yes (Other)
  Sender: FDA-Public Use
  Company Number: PHEH2011US07509

PATIENT
  Sex: Female

DRUGS (3)
  1. GILENYA [Suspect]
     Dosage: 0.5 MG, QD
     Route: 048
     Dates: start: 20110303
  2. ZORTEX [Concomitant]
  3. LEXAPRO [Concomitant]

REACTIONS (6)
  - ABDOMINAL PAIN [None]
  - LYMPHOCYTE COUNT DECREASED [None]
  - IRRITABLE BOWEL SYNDROME [None]
  - DIARRHOEA HAEMORRHAGIC [None]
  - NEUTROPHIL COUNT DECREASED [None]
  - WHITE BLOOD CELL COUNT DECREASED [None]
